FAERS Safety Report 7410977-8 (Version None)
Quarter: 2011Q2

REPORT INFORMATION
  Report Type: 
  Country: None (occurrence: None)
  Receive Date: 20110405
  Receipt Date: 20110328
  Transmission Date: 20111010
  Serious: Yes (Hospitalization)
  Sender: FDA-Public Use
  Company Number: DAV-AE-MTX-11-006

PATIENT
  Age: 75 Year
  Sex: Female

DRUGS (1)
  1. METHOTREXATE [Suspect]
     Indication: RHEUMATOID ARTHRITIS
     Dosage: 6 MG/WK

REACTIONS (6)
  - ALTERED STATE OF CONSCIOUSNESS [None]
  - EPSTEIN-BARR VIRUS INFECTION [None]
  - EPSTEIN-BARR VIRUS ASSOCIATED LYMPHOPROLIFERATIVE DISORDER [None]
  - ENCEPHALITIS [None]
  - CONVULSION [None]
  - PERIPHERAL T-CELL LYMPHOMA UNSPECIFIED [None]
